FAERS Safety Report 6644710-4 (Version None)
Quarter: 2010Q1

REPORT INFORMATION
  Report Type: 
  Country: None (occurrence: None)
  Receive Date: 20100317
  Receipt Date: 20100308
  Transmission Date: 20100710
  Serious: Yes (Death)
  Sender: FDA-Public Use
  Company Number: B0639533A

PATIENT
  Sex: 0

DRUGS (12)
  1. MELPHALAN HYDROCHLORIDE [Suspect]
     Indication: BONE MARROW TRANSPLANT
     Dosage: 140 MG/M2 /
  2. ETOPOSIDE [Suspect]
     Indication: BONE MARROW TRANSPLANT
     Dosage: 200 MG/M2
  3. CARMUSTINE [Suspect]
     Indication: BONE MARROW TRANSPLANT
     Dosage: 300 MG/M2
  4. CYTARABINE [Suspect]
     Indication: BONE MARROW TRANSPLANT
     Dosage: 200 MG/M2
  5. ANTILYMPHOCYTE IG (FORMULATION UNKNOWN) (ANTILYMPHOCYTE IG) [Suspect]
     Indication: BONE MARROW TRANSPLANT
  6. METHYLPREDNISOLONE [Suspect]
     Indication: BONE MARROW TRANSPLANT
  7. GRANULOCYTE COL.STIM.FACT [Concomitant]
  8. ACYCLOVIR [Concomitant]
  9. FLUCONAZOLE [Concomitant]
  10. CIPROFLOXACIN [Concomitant]
  11. COTRIM [Concomitant]
  12. THIABENDAZOLE [Concomitant]

REACTIONS (2)
  - DRUG TOXICITY [None]
  - PULMONARY ALVEOLAR HAEMORRHAGE [None]
